FAERS Safety Report 9225753 (Version 2)
Quarter: 2013Q3

REPORT INFORMATION
  Report Type: Report from Study
  Country: KR (occurrence: KR)
  Receive Date: 20130411
  Receipt Date: 20130708
  Transmission Date: 20140515
  Serious: Yes (Death)
  Sender: FDA-Public Use
  Company Number: KR-GLAXOSMITHKLINE-B0882814A

PATIENT
  Age: 43 Year
  Sex: Female
  Weight: 54 kg

DRUGS (2)
  1. TYKERB [Suspect]
     Indication: BREAST CANCER
     Dosage: 1250MG PER DAY
     Route: 048
     Dates: start: 20100629, end: 20100704
  2. XELODA [Concomitant]
     Indication: BREAST CANCER
     Dosage: 3300MG TWICE PER DAY
     Route: 048
     Dates: start: 20100629, end: 20100704

REACTIONS (2)
  - Breast cancer [Fatal]
  - Disease progression [Fatal]
